FAERS Safety Report 7383640-X (Version None)
Quarter: 2011Q1

REPORT INFORMATION
  Report Type: 
  Country: None (occurrence: None)
  Receive Date: 20110330
  Receipt Date: 20101213
  Transmission Date: 20110831
  Serious: Yes (Other)
  Sender: FDA-Public Use
  Company Number: US-BAYER-2011-025334

PATIENT
  Sex: Female
  Weight: 58.957 kg

DRUGS (7)
  1. NORPACE [Concomitant]
  2. FLECAINIDE [Concomitant]
     Dosage: UNK
  3. INDERAL [Concomitant]
  4. OCELLA [Suspect]
     Indication: POLYCYSTIC OVARIES
     Dosage: 1 DF, QD
     Route: 048
     Dates: start: 19990101, end: 20080101
  5. YASMIN [Suspect]
     Indication: POLYCYSTIC OVARIES
     Dosage: 1 DF, QD
     Route: 048
     Dates: start: 19990101, end: 20091103
  6. ELMIRON [Concomitant]
  7. YAZ [Suspect]
     Indication: POLYCYSTIC OVARIES
     Dosage: 1 DF, QD
     Route: 048
     Dates: start: 19990101, end: 20080101

REACTIONS (3)
  - CYSTITIS INTERSTITIAL [None]
  - SUPRAVENTRICULAR TACHYCARDIA [None]
  - CHOLELITHIASIS [None]
